FAERS Safety Report 19299962 (Version 1)
Quarter: 2021Q2

REPORT INFORMATION
  Report Type: Spontaneous
  Country: CA (occurrence: CA)
  Receive Date: 20210525
  Receipt Date: 20210525
  Transmission Date: 20210717
  Serious: Yes (Other)
  Sender: FDA-Public Use
  Company Number: CA-LUPIN PHARMACEUTICALS INC.-2021-07793

PATIENT
  Age: 39 Year
  Sex: Male

DRUGS (1)
  1. TESTOSTERONE. [Suspect]
     Active Substance: TESTOSTERONE
     Indication: STEROID THERAPY
     Dosage: UNK
     Route: 048

REACTIONS (2)
  - Electrocardiogram abnormal [Recovering/Resolving]
  - Echocardiogram abnormal [Recovering/Resolving]
